FAERS Safety Report 9288657 (Version 2)
Quarter: 2013Q4

REPORT INFORMATION
  Report Type: Report from Study
  Country: US (occurrence: US)
  Receive Date: 20130514
  Receipt Date: 20131230
  Transmission Date: 20140711
  Serious: Yes (Other)
  Sender: FDA-Public Use
  Company Number: PHEH2013US010543

PATIENT
  Age: 67 Year
  Sex: Female
  Weight: 104.76 kg

DRUGS (8)
  1. TASIGNA [Suspect]
     Dosage: 300 MG, BID
     Route: 048
  2. ASPIRIN [Concomitant]
     Dosage: 81 MG
     Route: 048
  3. FLONASE [Concomitant]
     Dosage: 0.05 %
  4. LISINOPRIL [Concomitant]
     Dosage: 2.5 MG
     Route: 048
  5. PLAVIX [Concomitant]
     Dosage: 75 MG
     Route: 048
  6. APOVIT CALCIUM [Concomitant]
     Route: 048
  7. CENTRUM [Concomitant]
     Route: 048
  8. METFORMIN [Concomitant]
     Dosage: 500 MG
     Route: 048

REACTIONS (4)
  - Cognitive disorder [Unknown]
  - Tachycardia [Unknown]
  - Abdominal pain upper [Unknown]
  - Asthenia [Unknown]
